FAERS Safety Report 6154434-8 (Version None)
Quarter: 2009Q2

REPORT INFORMATION
  Report Type: 
  Country: None (occurrence: None)
  Receive Date: 20090414
  Receipt Date: 20090406
  Transmission Date: 20091009
  Serious: Yes (Hospitalization)
  Sender: FDA-Public Use
  Company Number: FR-MERCK-0904FRA00020

PATIENT
  Age: 78 Year
  Sex: Female

DRUGS (10)
  1. HYZAAR [Suspect]
     Indication: HYPERTENSION
     Route: 048
     Dates: end: 20090104
  2. CELECOXIB [Suspect]
     Route: 048
     Dates: end: 20090104
  3. FUROSEMIDE [Suspect]
     Indication: CARDIAC FAILURE
     Route: 048
     Dates: start: 20090102, end: 20090104
  4. GLIMEPIRIDE [Concomitant]
     Indication: TYPE 2 DIABETES MELLITUS
     Route: 048
  5. NICARDIPINE HYDROCHLORIDE [Concomitant]
     Indication: HYPERTENSION
     Route: 048
  6. RILMENIDINE [Concomitant]
     Route: 048
  7. ATORVASTATIN CALCIUM [Concomitant]
     Indication: HYPERCHOLESTEROLAEMIA
     Route: 048
  8. ACETAMINOPHEN AND PROPOXYPHENE HYDROCHLORIDE [Concomitant]
     Route: 048
  9. ZOPICLONE [Concomitant]
     Route: 048
  10. AMOXICILLIN AND CLAVULANATE POTASSIUM [Concomitant]
     Indication: LUNG INFECTION
     Route: 048
     Dates: start: 20081201

REACTIONS (2)
  - ANURIA [None]
  - RENAL FAILURE ACUTE [None]
